FAERS Safety Report 21698523 (Version 1)
Quarter: 2022Q4

REPORT INFORMATION
  Report Type: Report from Study
  Country: US (occurrence: US)
  Receive Date: 20221208
  Receipt Date: 20221208
  Transmission Date: 20230112
  Serious: Yes (Hospitalization, Other)
  Sender: FDA-Public Use
  Company Number: US-INSMED-2021-08600-USAA

PATIENT
  Age: 58 Year
  Sex: Female
  Weight: 43.991 kg

DRUGS (2)
  1. ARIKAYCE [Suspect]
     Active Substance: AMIKACIN
     Indication: Mycobacterial infection
     Dosage: 590 MILLIGRAM, QD
     Route: 055
     Dates: end: 2021
  2. ARIKAYCE [Suspect]
     Active Substance: AMIKACIN
     Dosage: 590 MILLIGRAM, QD
     Route: 055
     Dates: start: 2021, end: 2021

REACTIONS (11)
  - Hospitalisation [Unknown]
  - Surgery [Recovered/Resolved]
  - Mycobacterial infection [Not Recovered/Not Resolved]
  - Lung disorder [Unknown]
  - Autoimmune disorder [Recovering/Resolving]
  - Post procedural complication [Unknown]
  - Illness [Not Recovered/Not Resolved]
  - Malaise [Unknown]
  - Unevaluable event [Recovered/Resolved]
  - Product dose omission issue [Unknown]
  - Drug ineffective [Unknown]

NARRATIVE: CASE EVENT DATE: 20210501
